FAERS Safety Report 8808412 (Version 1)
Quarter: 2012Q4

REPORT INFORMATION
  Report Type: Spontaneous
  Country: US (occurrence: None)
  Receive Date: 20120919
  Receipt Date: 20120919
  Transmission Date: 20130627
  Serious: Yes (Other)
  Sender: FDA-Public Use
  Company Number: US-BANPHARM-20120126

PATIENT
  Age: 90 Year
  Sex: Female
  Weight: 51.26 kg

DRUGS (6)
  1. CETIRIZINE [Suspect]
     Indication: COPD
     Dosage: 1/2 TAB
     Route: 048
     Dates: start: 20120903
  2. CETIRIZINE [Suspect]
     Indication: THROAT IRRITATION
     Dosage: 1/2 TAB
     Route: 048
     Dates: start: 20120903
  3. CETIRIZINE [Suspect]
     Indication: COPD
     Route: 048
     Dates: start: 201208, end: 20120903
  4. PREDNISONE [Concomitant]
  5. ALBUTEROL INHALER [Concomitant]
  6. SYNACORT INHALER [Concomitant]

REACTIONS (4)
  - Dizziness [None]
  - Anxiety [None]
  - Somnolence [None]
  - Visual impairment [None]
